FAERS Safety Report 8463013-9 (Version None)
Quarter: 2012Q2

REPORT INFORMATION
  Report Type: 
  Country: None (occurrence: None)
  Receive Date: 20120625
  Receipt Date: 20120620
  Transmission Date: 20120825
  Serious: Yes (Hospitalization)
  Sender: FDA-Public Use
  Company Number: JP-GLAXOSMITHKLINE-B0809925A

PATIENT
  Sex: Male

DRUGS (4)
  1. LANSOPRAZOLE [Concomitant]
     Route: 048
  2. PRAVASTATIN [Concomitant]
     Route: 048
  3. FUROSEMIDE [Concomitant]
     Route: 048
  4. VALTREX [Suspect]
     Indication: HERPES ZOSTER
     Dosage: 2000MG PER DAY
     Route: 048
     Dates: start: 20120617, end: 20120619

REACTIONS (6)
  - NAUSEA [None]
  - RENAL IMPAIRMENT [None]
  - DECREASED APPETITE [None]
  - RASH [None]
  - GAIT DISTURBANCE [None]
  - PYREXIA [None]
